FAERS Safety Report 25391332 (Version 1)
Quarter: 2025Q2

REPORT INFORMATION
  Report Type: Report from Study
  Country: AR (occurrence: AR)
  Receive Date: 20250603
  Receipt Date: 20250603
  Transmission Date: 20250716
  Serious: Yes (Other)
  Sender: NOVARTIS
  Company Number: AR-002147023-NVSC2025AR088542

PATIENT
  Age: 44 Year
  Sex: Female

DRUGS (1)
  1. GILENYA [Suspect]
     Active Substance: FINGOLIMOD HYDROCHLORIDE
     Indication: Multiple sclerosis
     Route: 065
     Dates: start: 20131118

REACTIONS (7)
  - Blindness [Not Recovered/Not Resolved]
  - Multiple sclerosis relapse [Unknown]
  - Eye pain [Unknown]
  - Ocular discomfort [Recovering/Resolving]
  - Vision blurred [Unknown]
  - Stress [Unknown]
  - Aggression [Unknown]

NARRATIVE: CASE EVENT DATE: 20241201
